FAERS Safety Report 5819381-7 (Version None)
Quarter: 2008Q3

REPORT INFORMATION
  Report Type: 
  Country: None (occurrence: None)
  Receive Date: 20080718
  Receipt Date: 20080704
  Transmission Date: 20090109
  Serious: Yes (Death)
  Sender: FDA-Public Use
  Company Number: S08-TUR-02013-01

PATIENT
  Age: 90 Year
  Sex: Female

DRUGS (1)
  1. MEMANTINE (MEMANTINE HYDROCHLORIDE) (20 MILLIGRAM, TABLETS) [Suspect]
     Indication: DEMENTIA ALZHEIMER'S TYPE
     Dosage: 20 MG (20 MG, 1 IN 1 D), ORAL
     Route: 048
     Dates: start: 20080420, end: 20080524

REACTIONS (1)
  - ISCHAEMIC STROKE [None]
